FAERS Safety Report 5986662-6 (Version None)
Quarter: 2008Q4

REPORT INFORMATION
  Report Type: 
  Country: None (occurrence: None)
  Receive Date: 20081209
  Receipt Date: 20081205
  Transmission Date: 20090506
  Serious: Yes (Death)
  Sender: FDA-Public Use
  Company Number: AT-EISAI MEDICAL RESEARCH-E2020-03801-CLI-AT

PATIENT
  Sex: Male

DRUGS (1)
  1. DONEPEZIL HCL [Suspect]
     Indication: BLOOD GROWTH HORMONE
     Route: 048

REACTIONS (1)
  - DEATH [None]
